APPROVED DRUG PRODUCT: GERIMAL
Active Ingredient: ERGOLOID MESYLATES
Strength: 1MG
Dosage Form/Route: TABLET;ORAL
Application: A088207 | Product #001
Applicant: WATSON LABORATORIES INC
Approved: Mar 22, 1984 | RLD: No | RS: No | Type: DISCN